FAERS Safety Report 21440106 (Version 1)
Quarter: 2022Q4

REPORT INFORMATION
  Report Type: Report from Study
  Country: US (occurrence: US)
  Receive Date: 20221011
  Receipt Date: 20221011
  Transmission Date: 20230113
  Serious: Yes (Other)
  Sender: FDA-Public Use
  Company Number: US-MYLANLABS-2022M1110794

PATIENT

DRUGS (3)
  1. MELPHALAN [Suspect]
     Active Substance: MELPHALAN
     Indication: Monoclonal gammopathy
     Dosage: UNK
     Route: 065
  2. MELPHALAN [Suspect]
     Active Substance: MELPHALAN
     Indication: Light chain disease
  3. MELPHALAN [Suspect]
     Active Substance: MELPHALAN
     Indication: Renal disorder

REACTIONS (3)
  - Disease progression [Unknown]
  - Drug ineffective for unapproved indication [Unknown]
  - Off label use [Unknown]
